FAERS Safety Report 5932987-X (Version None)
Quarter: 2008Q4

REPORT INFORMATION
  Report Type: 
  Country: None (occurrence: None)
  Receive Date: 20081027
  Receipt Date: 20081027
  Transmission Date: 20090506
  Serious: Yes (Life-Threatening)
  Sender: FDA-Public Use
  Company Number: None

PATIENT
  Age: 40 Year
  Sex: Female
  Weight: 40.8237 kg

DRUGS (2)
  1. FENTANYL CITRATE [Suspect]
     Indication: INTERVERTEBRAL DISC PROTRUSION
     Dosage: 25 EVERY 72 HOURS TRANSDERMAL
     Route: 062
     Dates: start: 20081009, end: 20081015
  2. FENTANYL CITRATE [Suspect]
     Indication: NEURALGIA
     Dosage: 25 EVERY 72 HOURS TRANSDERMAL
     Route: 062
     Dates: start: 20081009, end: 20081015

REACTIONS (8)
  - DRUG WITHDRAWAL SYNDROME [None]
  - DYSPNOEA [None]
  - FATIGUE [None]
  - MALAISE [None]
  - OVERDOSE [None]
  - PRODUCT QUALITY ISSUE [None]
  - SKIN ODOUR ABNORMAL [None]
  - WEIGHT DECREASED [None]
